FAERS Safety Report 18222980 (Version 1)
Quarter: 2020Q3

REPORT INFORMATION
  Report Type: Spontaneous
  Country: FR (occurrence: FR)
  Receive Date: 20200902
  Receipt Date: 20200902
  Transmission Date: 20201103
  Serious: Yes (Hospitalization)
  Sender: FDA-Public Use
  Company Number: FR-009507513-2008FRA012671

PATIENT
  Age: 45 Year
  Sex: Female
  Weight: 89 kg

DRUGS (4)
  1. DIPROSTENE [Suspect]
     Active Substance: BETAMETHASONE DIPROPIONATE\BETAMETHASONE SODIUM PHOSPHATE
     Indication: SPONDYLITIS
     Dosage: 1 DOSAGE FORM, ONCE, SUSPENSION FOR INJECTION IN PRE?FILLED SYRINGE
     Route: 030
     Dates: start: 20191205, end: 20191205
  2. PROFENID [Suspect]
     Active Substance: KETOPROFEN
     Indication: SPONDYLITIS
     Dosage: 2 DOSAGE FORM, QD
     Route: 030
  3. JASMINELLE [Suspect]
     Active Substance: DROSPIRENONE
     Indication: CONTRACEPTION
     Dosage: 1 DOSAGE FORM, QD
     Route: 048
     Dates: start: 202002, end: 202002
  4. ETANERCEPT [Suspect]
     Active Substance: ETANERCEPT
     Indication: SPONDYLITIS
     Dosage: 1 DOSAGE FORM, QW, SOLUTION FOR INJECTION IN PRE?FILLED SYRINGE
     Route: 058
     Dates: start: 201912

REACTIONS (2)
  - Pulmonary embolism [Recovered/Resolved]
  - Deep vein thrombosis [Recovered/Resolved]

NARRATIVE: CASE EVENT DATE: 20191222
